FAERS Safety Report 7941523-8 (Version None)
Quarter: 2011Q4

REPORT INFORMATION
  Report Type: 
  Country: None (occurrence: None)
  Receive Date: 20111128
  Receipt Date: 20111117
  Transmission Date: 20120403
  Serious: Yes (Hospitalization)
  Sender: FDA-Public Use
  Company Number: US-ASTELLAS-2011US007693

PATIENT

DRUGS (3)
  1. PROGRAF [Suspect]
     Indication: LIVER TRANSPLANT
     Dosage: 1 MG, BID
     Route: 048
     Dates: start: 19990730, end: 20100301
  2. NEXIUM [Concomitant]
     Indication: GASTROINTESTINAL DISORDER
     Dosage: 20 MG, UID/QD
     Route: 048
  3. ASPIRIN [Concomitant]
     Indication: PAIN
     Dosage: 800 MG, UID/QD
     Route: 048

REACTIONS (4)
  - FEMUR FRACTURE [None]
  - FALL [None]
  - HAEMORRHAGE [None]
  - LIVER TRANSPLANT REJECTION [None]
